FAERS Safety Report 4752717-7 (Version None)
Quarter: 2005Q3

REPORT INFORMATION
  Report Type: 
  Country: None (occurrence: None)
  Receive Date: 20050823
  Receipt Date: 20050809
  Transmission Date: 20060218
  Serious: Yes (Other)
  Sender: FDA-Public Use
  Company Number: 216582

PATIENT
  Age: 57 Year
  Sex: Female
  Weight: 68.5 kg

DRUGS (4)
  1. RAPTIVA [Suspect]
     Indication: PSORIASIS
     Dosage: 0.5 ML, SINGLE, SUBCUTANEOUS; 0.7 ML, 1/WEEK, SUBCUTANEOUS
     Route: 058
     Dates: start: 20040121, end: 20040121
  2. SULFASALAZINE [Concomitant]
  3. LEVOXYL [Concomitant]
  4. ALLEGRA [Concomitant]

REACTIONS (4)
  - BUDD-CHIARI SYNDROME [None]
  - HEPATOSPLENOMEGALY [None]
  - PORTAL HYPERTENSION [None]
  - VENOOCCLUSIVE LIVER DISEASE [None]
